FAERS Safety Report 4528902-6 (Version None)
Quarter: 2004Q4

REPORT INFORMATION
  Report Type: 
  Country: None (occurrence: None)
  Receive Date: 20041214
  Receipt Date: 20041129
  Transmission Date: 20050328
  Serious: Yes (Hospitalization)
  Sender: FDA-Public Use
  Company Number: 210586

PATIENT
  Age: 63 Year
  Sex: Male

DRUGS (1)
  1. RAPTIVA [Suspect]
     Indication: PSORIASIS
     Dosage: 1 MG/KG, SUBCUTANEOUS
     Route: 058
     Dates: start: 20040727, end: 20041109

REACTIONS (5)
  - IMMUNE SYSTEM DISORDER [None]
  - INTERSTITIAL LUNG DISEASE [None]
  - PERICARDITIS [None]
  - PULMONARY EMBOLISM [None]
  - VIRAL INFECTION [None]
